FAERS Safety Report 5811003-4 (Version None)
Quarter: 2008Q4

REPORT INFORMATION
  Report Type: 
  Country: None (occurrence: None)
  Receive Date: 20080710
  Receipt Date: 20080702
  Transmission Date: 20090506
  Serious: Yes (Hospitalization)
  Sender: FDA-Public Use
  Company Number: CHNY2008JP02126

PATIENT
  Age: 59 Year
  Sex: Male

DRUGS (7)
  1. TAVEGYL (NCH) (CLEMASTINE HYDROGEN FUMARATE) UNKNOWN [Suspect]
     Indication: RESPIRATORY TRACT INFECTION
     Dosage: ORAL
     Route: 048
     Dates: start: 20080519
  2. THEO-DUR [Suspect]
     Dates: start: 20080519
  3. CLARITHROMYCIN [Suspect]
     Dates: start: 20080519
  4. MUCOSTA (REBAMIPIDE) [Suspect]
     Dates: start: 20080519
  5. ASVERIN (TIPEPIDINE HIBENZATE) [Suspect]
     Dates: start: 20080519
  6. PROCATEROL HCL [Suspect]
     Dates: start: 20080519
  7. SELTEPNON (TEPRENONE) [Suspect]
     Dates: start: 20080519

REACTIONS (4)
  - AGRANULOCYTOSIS [None]
  - LYMPHOCYTE STIMULATION TEST POSITIVE [None]
  - PYREXIA [None]
  - STOMATITIS [None]
